FAERS Safety Report 8988790 (Version 1)
Quarter: 2012Q4

REPORT INFORMATION
  Report Type: 
  Country: FI (occurrence: FI)
  Receive Date: 20121228
  Receipt Date: 20121228
  Transmission Date: 20130627
  Serious: Yes (Other)
  Sender: FDA-Public Use
  Company Number: FI-JNJFOC-20121200427

PATIENT
  Age: 39 Year
  Sex: Male

DRUGS (6)
  1. CONCERTA [Suspect]
     Indication: POISONING
     Route: 048
  2. SUBOXONE [Concomitant]
     Route: 065
  3. DEPAKINE [Concomitant]
     Route: 065
  4. OPAMOX [Concomitant]
     Route: 065
  5. DOXAL [Concomitant]
     Route: 065
  6. PAROXETINE [Concomitant]
     Route: 065

REACTIONS (1)
  - Drug abuse [Unknown]
